FAERS Safety Report 9219291 (Version 2)
Quarter: 2013Q2

REPORT INFORMATION
  Report Type: Spontaneous
  Country: GR (occurrence: GR)
  Receive Date: 20130409
  Receipt Date: 20130419
  Transmission Date: 20140414
  Serious: Yes (Hospitalization)
  Sender: FDA-Public Use
  Company Number: GR-ABBOTT-13X-066-1071681-00

PATIENT
  Age: 66 Year
  Sex: Female

DRUGS (16)
  1. LIPIDIL [Suspect]
     Indication: RENAL FAILURE CHRONIC
     Route: 048
     Dates: start: 20130301, end: 20130320
  2. LIPIDIL [Suspect]
     Indication: HAEMODIALYSIS
  3. LEPUR [Concomitant]
     Indication: RENAL FAILURE CHRONIC
  4. LEPUR [Concomitant]
     Indication: MYOCARDIAL ISCHAEMIA
  5. SALOSPIR [Concomitant]
     Indication: MYOCARDIAL ISCHAEMIA
  6. DILATREND [Concomitant]
     Indication: MYOCARDIAL ISCHAEMIA
  7. VASEXTEN [Concomitant]
     Indication: MYOCARDIAL ISCHAEMIA
  8. MIMPARA [Concomitant]
     Indication: RENAL FAILURE CHRONIC
  9. CONTROLOC [Concomitant]
     Indication: GASTRIC DISORDER
  10. CONTROLOC [Concomitant]
     Indication: PROPHYLAXIS
  11. NEUROBION [Concomitant]
     Indication: HAEMODIALYSIS
  12. ONE -ALPHA [Concomitant]
     Indication: HAEMODIALYSIS
     Dosage: 2 X THRICE/WEEK
  13. INTELECTA [Concomitant]
     Indication: HAEMODIALYSIS
  14. VENOFER [Concomitant]
     Indication: HAEMODIALYSIS
  15. ERYTHROPOIETIN [Concomitant]
     Indication: HAEMODIALYSIS
  16. OSMERAL (NUTRITIONAL) [Concomitant]
     Indication: PRODUCT USED FOR UNKNOWN INDICATION

REACTIONS (5)
  - Dysstasia [Recovered/Resolved]
  - Muscular weakness [Recovered/Resolved]
  - Myalgia [Recovered/Resolved]
  - Pruritus [Recovered/Resolved]
  - Rhabdomyolysis [Recovered/Resolved]
